FAERS Safety Report 25181862 (Version 2)
Quarter: 2025Q2

REPORT INFORMATION
  Report Type: Spontaneous
  Country: US (occurrence: US)
  Receive Date: 20250410
  Receipt Date: 20250510
  Transmission Date: 20250716
  Serious: No
  Sender: GRANULES PHARMACEUTICALS INC
  Company Number: US-GRANULES-US-2025GRASPO00153

PATIENT
  Age: 63 Year
  Sex: Male

DRUGS (1)
  1. FEXOFENADINE HYDROCHLORIDE [Suspect]
     Active Substance: FEXOFENADINE HYDROCHLORIDE
     Indication: Seasonal allergy
     Route: 048
     Dates: start: 20250323

REACTIONS (2)
  - Wrong product administered [Unknown]
  - Product commingling [Unknown]

NARRATIVE: CASE EVENT DATE: 20250323
